FAERS Safety Report 17201863 (Version 2)
Quarter: 2020Q1

REPORT INFORMATION
  Report Type: Spontaneous
  Country: US (occurrence: US)
  Receive Date: 20191226
  Receipt Date: 20200210
  Transmission Date: 20200409
  Serious: No
  Sender: FDA-Public Use
  Company Number: US-PFIZER INC-2019549188

PATIENT
  Age: 48 Year
  Sex: Female
  Weight: 85.73 kg

DRUGS (1)
  1. ADVIL [Suspect]
     Active Substance: IBUPROFEN
     Indication: ARTHRITIS
     Dosage: 600 MG (3 COATED CAPLETS), EVERY 6-8 HOURS
     Route: 048

REACTIONS (4)
  - Poor quality product administered [Unknown]
  - Incorrect dose administered [Unknown]
  - Gait disturbance [Unknown]
  - Product coating issue [Unknown]

NARRATIVE: CASE EVENT DATE: 20191216
